FAERS Safety Report 15663918 (Version 1)
Quarter: 2018Q4

REPORT INFORMATION
  Report Type: Spontaneous
  Country: US (occurrence: US)
  Receive Date: 20181128
  Receipt Date: 20181128
  Transmission Date: 20190205
  Serious: Yes (Other)
  Sender: FDA-Public Use
  Company Number: US-CIPLA LTD.-2018US23104

PATIENT

DRUGS (10)
  1. LOPINAVIR/RITONAVIR [Interacting]
     Active Substance: LOPINAVIR\RITONAVIR
     Indication: HIV INFECTION
     Dosage: UNK, BID
     Route: 065
     Dates: end: 201708
  2. DARUNAVIR [Concomitant]
     Active Substance: DARUNAVIR
     Indication: HIV INFECTION
     Dosage: 800 MG, DAILY
     Route: 065
     Dates: start: 201708
  3. COBICISTAT [Concomitant]
     Active Substance: COBICISTAT
     Indication: HIV INFECTION
     Dosage: 150 MG, DAILY
     Route: 065
     Dates: start: 201708
  4. WARFARIN [Interacting]
     Active Substance: WARFARIN
     Dosage: 17.5 MG, ON SUNDAY, WEDNESDAY, AND FRIDAY
     Route: 065
     Dates: start: 2005
  5. RALTEGRAVIR. [Concomitant]
     Active Substance: RALTEGRAVIR
     Indication: HIV INFECTION
     Dosage: UNK, BID
     Route: 065
     Dates: end: 201708
  6. EMTRICITABINE [Concomitant]
     Active Substance: EMTRICITABINE
     Indication: HIV INFECTION
     Dosage: UNK, DAILY
     Route: 065
  7. WARFARIN [Suspect]
     Active Substance: WARFARIN
     Indication: HYPERCOAGULATION
     Dosage: 15 MG, ON MONDAY, TUESDAY, THURSDAY, AND SATURDAY
     Route: 065
     Dates: start: 2005
  8. MARAVIROC [Concomitant]
     Active Substance: MARAVIROC
     Indication: HIV INFECTION
     Dosage: UNK, BID
     Route: 065
  9. WARFARIN [Interacting]
     Active Substance: WARFARIN
     Dosage: UNK, 47% DOSE REDUCTION
     Route: 065
  10. DOLUTEGRAVIR [Concomitant]
     Active Substance: DOLUTEGRAVIR
     Indication: HIV INFECTION
     Dosage: 50 MG, DAILY
     Route: 065
     Dates: start: 201708

REACTIONS (2)
  - Anticoagulation drug level above therapeutic [Recovered/Resolved]
  - Drug interaction [Unknown]
